FAERS Safety Report 15675504 (Version 1)
Quarter: 2018Q4

REPORT INFORMATION
  Report Type: Spontaneous
  Country: DE (occurrence: DE)
  Receive Date: 20181130
  Receipt Date: 20181130
  Transmission Date: 20190205
  Serious: Yes (Hospitalization)
  Sender: FDA-Public Use
  Company Number: DE-TEVA-2018-DE-980304

PATIENT
  Age: 66 Year
  Sex: Male

DRUGS (5)
  1. VALSARTAN ABZ 80 MG FILMTABLETTEN [Suspect]
     Active Substance: VALSARTAN
     Route: 048
     Dates: start: 20150805, end: 20180530
  2. PANTOPRAZOL [Concomitant]
     Active Substance: PANTOPRAZOLE SODIUM
     Dosage: INTAKE CYCLICAL
     Route: 048
     Dates: start: 20150903
  3. VALSACOR 80 MG FILMTABLETTEN [Suspect]
     Active Substance: VALSARTAN
     Route: 048
     Dates: start: 20180710
  4. VALSARTAN DURA 80 MG FILMTABLETTEN [Suspect]
     Active Substance: VALSARTAN
     Route: 048
     Dates: start: 20180810, end: 20180907
  5. BISOPROLOL 1A PHARMA [Concomitant]
     Active Substance: BISOPROLOL
     Dosage: INTAKE CYCLICAL
     Route: 048
     Dates: start: 20150105

REACTIONS (2)
  - B-cell lymphoma [Unknown]
  - Product impurity [Unknown]

NARRATIVE: CASE EVENT DATE: 201707
